FAERS Safety Report 8923436 (Version 1)
Quarter: 2012Q4

REPORT INFORMATION
  Report Type: 
  Country: US (occurrence: US)
  Receive Date: 20121123
  Receipt Date: 20121123
  Transmission Date: 20130627
  Serious: Yes (Disabling)
  Sender: FDA-Public Use
  Company Number: US-JNJFOC-20121012776

PATIENT
  Age: 57 Year
  Sex: Male
  Weight: 77.11 kg

DRUGS (4)
  1. LEVAQUIN [Suspect]
     Indication: BURSITIS INFECTIVE
     Route: 048
     Dates: start: 20121010, end: 20121015
  2. OMEPRAZOLE [Concomitant]
     Indication: GASTROOESOPHAGEAL REFLUX DISEASE
     Dosage: for the past 10 years.
     Route: 065
  3. ATORVASTATIN [Concomitant]
     Indication: HYPERLIPIDAEMIA
     Dosage: for the past three years
     Route: 065
  4. ATORVASTATIN [Concomitant]
     Indication: BLOOD CHOLESTEROL INCREASED
     Dosage: for the past three years
     Route: 065

REACTIONS (3)
  - Tendon rupture [Not Recovered/Not Resolved]
  - Muscular weakness [Not Recovered/Not Resolved]
  - Muscle contractions involuntary [Not Recovered/Not Resolved]
